FAERS Safety Report 4719509-6 (Version None)
Quarter: 2005Q3

REPORT INFORMATION
  Report Type: 
  Country: None (occurrence: None)
  Receive Date: 20050719
  Receipt Date: 20050719
  Transmission Date: 20060218
  Serious: Yes (Hospitalization)
  Sender: FDA-Public Use
  Company Number: None

PATIENT
  Sex: Male

DRUGS (15)
  1. LISINOPRIL [Suspect]
     Indication: HYPERTENSION
     Dosage: 20 MG DAILY ORAL
     Route: 048
  2. LISINOPRIL [Suspect]
     Indication: PROTEINURIA
     Dosage: 20 MG DAILY ORAL
     Route: 048
  3. INSULIN [Concomitant]
  4. OXYCODONE HCL [Concomitant]
  5. DIGOXIN [Concomitant]
  6. FUROSEMIDE [Concomitant]
  7. DOCUSATE CALCIUM [Concomitant]
  8. OMEPRAZOLE [Concomitant]
  9. LORATADINE [Concomitant]
  10. COMBIVENT [Concomitant]
  11. AMITRIPTYLINE HCL [Concomitant]
  12. ASPIRIN [Concomitant]
  13. LOVASTATIN [Concomitant]
  14. FERROUS SULFATE TAB [Concomitant]
  15. SPIRONOLACTONE [Concomitant]

REACTIONS (1)
  - RENAL FAILURE ACUTE [None]
